FAERS Safety Report 4464981-2 (Version None)
Quarter: 2004Q4

REPORT INFORMATION
  Report Type: 
  Country: None (occurrence: None)
  Receive Date: 20041004
  Receipt Date: 20040511
  Transmission Date: 20050328
  Serious: No
  Sender: FDA-Public Use
  Company Number: 370267

PATIENT
  Sex: Male

DRUGS (5)
  1. COREG [Suspect]
     Dosage: 25MG TWICE PER DAY
     Route: 048
  2. METFORMIN [Concomitant]
  3. ACE INHIBITOR [Concomitant]
  4. DIURETIC [Concomitant]
  5. CONCURRENT MEDICATIONS [Concomitant]

REACTIONS (1)
  - HYPERTENSION [None]
